FAERS Safety Report 17851719 (Version 2)
Quarter: 2020Q2

REPORT INFORMATION
  Report Type: Report from Study
  Country: IN (occurrence: IN)
  Receive Date: 20200602
  Receipt Date: 20200605
  Transmission Date: 20200714
  Serious: Yes (Other)
  Sender: FDA-Public Use
  Company Number: NVSC2020IN065630

PATIENT
  Age: 57 Year
  Sex: Male
  Weight: 61 kg

DRUGS (6)
  1. GALVUS MET [Suspect]
     Active Substance: METFORMIN HYDROCHLORIDE\VILDAGLIPTIN
     Indication: DIABETES MELLITUS
     Dosage: (METFORMIN 500MG, VILDAGLIPTIN 50MG) (SINCE 4 YEARS)
     Route: 048
  2. DIAMICRON [Concomitant]
     Active Substance: GLICLAZIDE
     Indication: DIABETES MELLITUS
     Dosage: 1DF, BID
     Route: 048
  3. HETRAZAN [Concomitant]
     Active Substance: DIETHYLCARBAMAZINE CITRATE
     Indication: PRODUCT USED FOR UNKNOWN INDICATION
     Dosage: 100 MG, BID
     Route: 065
  4. ATARAX [Concomitant]
     Active Substance: HYDROXYZINE HYDROCHLORIDE
     Indication: PRODUCT USED FOR UNKNOWN INDICATION
     Dosage: 10 MG, PRN
     Route: 065
  5. TECZINE [Concomitant]
     Indication: PRODUCT USED FOR UNKNOWN INDICATION
     Dosage: 5 MG, BID
     Route: 065
  6. GALVUS MET [Suspect]
     Active Substance: METFORMIN HYDROCHLORIDE\VILDAGLIPTIN
     Dosage: 1 DF, BID (METFORMIN 500MG, VILDAGLIPTIN 50MG)
     Route: 048
     Dates: start: 201908

REACTIONS (8)
  - Pruritus [Not Recovered/Not Resolved]
  - Hyperglycaemia [Unknown]
  - Hypersensitivity [Unknown]
  - Dysuria [Unknown]
  - Blood glucose increased [Unknown]
  - Chromaturia [Unknown]
  - Urine output decreased [Unknown]
  - Dry skin [Unknown]

NARRATIVE: CASE EVENT DATE: 20200407
